FAERS Safety Report 9708143 (Version 1)
Quarter: 2013Q4

REPORT INFORMATION
  Report Type: Spontaneous
  Country: US (occurrence: None)
  Receive Date: 20131122
  Receipt Date: 20131122
  Transmission Date: 20140711
  Serious: No
  Sender: FDA-Public Use
  Company Number: None

PATIENT
  Age: 23 Year
  Sex: Male
  Weight: 81.8 kg

DRUGS (1)
  1. ALFA 2 INTERFERON 2B [Suspect]

REACTIONS (5)
  - Blood creatine phosphokinase increased [None]
  - Aspartate aminotransferase increased [None]
  - Alanine aminotransferase increased [None]
  - Headache [None]
  - Fatigue [None]
